FAERS Safety Report 14562182 (Version 1)
Quarter: 2018Q1

REPORT INFORMATION
  Report Type: Spontaneous
  Country: US (occurrence: US)
  Receive Date: 20180221
  Receipt Date: 20180221
  Transmission Date: 20180509
  Serious: Yes (Hospitalization)
  Sender: FDA-Public Use
  Company Number: None

PATIENT
  Age: 41 Year
  Sex: Female
  Weight: 58 kg

DRUGS (1)
  1. BACTRIM DS [Suspect]
     Active Substance: SULFAMETHOXAZOLE\TRIMETHOPRIM
     Indication: ABDOMINAL DISCOMFORT
     Route: 048
     Dates: start: 20180208, end: 20180215

REACTIONS (5)
  - Insomnia [None]
  - Intentional self-injury [None]
  - Chest discomfort [None]
  - Wound [None]
  - Hallucination, auditory [None]

NARRATIVE: CASE EVENT DATE: 20180215
